FAERS Safety Report 20750324 (Version 1)
Quarter: 2022Q2

REPORT INFORMATION
  Report Type: Report from Study
  Country: AT (occurrence: AT)
  Receive Date: 20220426
  Receipt Date: 20220426
  Transmission Date: 20220721
  Serious: Yes (Other)
  Sender: FDA-Public Use
  Company Number: AT-002147023-NVSC2021AT217344

PATIENT
  Age: 82 Year
  Sex: Female

DRUGS (1)
  1. ATORVASTATIN CALCIUM [Suspect]
     Active Substance: ATORVASTATIN CALCIUM
     Dosage: 40 MG
     Route: 065

REACTIONS (5)
  - Concomitant disease progression [Unknown]
  - Arteriosclerosis coronary artery [Unknown]
  - Arthralgia [Unknown]
  - Drug intolerance [Unknown]
  - Myalgia [Unknown]
